FAERS Safety Report 7254271-7 (Version None)
Quarter: 2011Q1

REPORT INFORMATION
  Report Type: 
  Country: None (occurrence: None)
  Receive Date: 20110129
  Receipt Date: 20100122
  Transmission Date: 20110831
  Serious: No
  Sender: FDA-Public Use
  Company Number: US-ABBOTT-10P-163-0617728-00

PATIENT
  Sex: Female

DRUGS (4)
  1. HORMONE REPLACEMENT [Concomitant]
     Indication: HYSTERECTOMY
  2. TOPICAL MEDICATIONS [Concomitant]
     Indication: PSORIATIC ARTHROPATHY
     Route: 061
  3. EYE DROPS [Concomitant]
     Indication: GLAUCOMA
     Dosage: DAILY
  4. HUMIRA [Suspect]
     Indication: PSORIATIC ARTHROPATHY
     Dates: start: 20090526

REACTIONS (1)
  - THYROID CYST [None]
